FAERS Safety Report 12894856 (Version 1)
Quarter: 2016Q4

REPORT INFORMATION
  Report Type: Spontaneous
  Country: RU (occurrence: RU)
  Receive Date: 20161028
  Receipt Date: 20161028
  Transmission Date: 20170207
  Serious: Yes (Life-Threatening)
  Sender: FDA-Public Use
  Company Number: RU-ASTRAZENECA-2016SF11562

PATIENT
  Age: 69 Year
  Sex: Female
  Weight: 60 kg

DRUGS (4)
  1. VALS [Concomitant]
     Dosage: 80 MG
  2. XARELTO [Concomitant]
     Active Substance: RIVAROXABAN
     Dosage: 2,5 MG
  3. BRILINTA [Suspect]
     Active Substance: TICAGRELOR
     Indication: CORONARY ARTERY BYPASS
     Route: 048
  4. LANTUS [Concomitant]
     Active Substance: INSULIN GLARGINE
     Dosage: DAILY

REACTIONS (7)
  - Cough [Not Recovered/Not Resolved]
  - Off label use [Unknown]
  - Chest pain [Not Recovered/Not Resolved]
  - Dyspnoea [Not Recovered/Not Resolved]
  - Product use issue [Unknown]
  - Myocardial infarction [Recovered/Resolved]
  - Radiculopathy [Unknown]

NARRATIVE: CASE EVENT DATE: 201603
